FAERS Safety Report 5570518-7 (Version None)
Quarter: 2007Q4

REPORT INFORMATION
  Report Type: 
  Country: None (occurrence: None)
  Receive Date: 20071221
  Receipt Date: 20071121
  Transmission Date: 20080405
  Serious: No
  Sender: FDA-Public Use
  Company Number: US-BRISTOL-MYERS SQUIBB COMPANY-13990734

PATIENT
  Age: 66 Year
  Sex: Female
  Weight: 71 kg

DRUGS (4)
  1. ORENCIA [Suspect]
     Dosage: PT RECEIVED 3RD DOSE OF ORENCIA ON 02-NOV-2007.
     Route: 042
  2. ARAVA [Concomitant]
  3. IBUPROFEN [Concomitant]
  4. ONE-A-DAY [Concomitant]
     Dates: end: 20071001

REACTIONS (4)
  - ANOREXIA [None]
  - ERUCTATION [None]
  - FLATULENCE [None]
  - NAUSEA [None]
